FAERS Safety Report 25299725 (Version 1)
Quarter: 2025Q2

REPORT INFORMATION
  Report Type: Spontaneous
  Country: TR (occurrence: TR)
  Receive Date: 20250512
  Receipt Date: 20250512
  Transmission Date: 20250716
  Serious: Yes (Other)
  Sender: MYLAN
  Company Number: TR-MYLANLABS-2025M1038646

PATIENT
  Age: 53 Year
  Sex: Male
  Weight: 173 kg

DRUGS (8)
  1. DYMISTA [Suspect]
     Active Substance: AZELASTINE HYDROCHLORIDE\FLUTICASONE PROPIONATE
     Indication: Hypersensitivity
  2. DYMISTA [Suspect]
     Active Substance: AZELASTINE HYDROCHLORIDE\FLUTICASONE PROPIONATE
     Route: 045
  3. DYMISTA [Suspect]
     Active Substance: AZELASTINE HYDROCHLORIDE\FLUTICASONE PROPIONATE
     Route: 045
  4. DYMISTA [Suspect]
     Active Substance: AZELASTINE HYDROCHLORIDE\FLUTICASONE PROPIONATE
  5. NEBIVOLOL [Concomitant]
     Active Substance: NEBIVOLOL
  6. NEBIVOLOL [Concomitant]
     Active Substance: NEBIVOLOL
     Route: 048
  7. NEBIVOLOL [Concomitant]
     Active Substance: NEBIVOLOL
     Route: 048
  8. NEBIVOLOL [Concomitant]
     Active Substance: NEBIVOLOL

REACTIONS (1)
  - Arrhythmia [Recovered/Resolved]

NARRATIVE: CASE EVENT DATE: 20240801
